FAERS Safety Report 9961512 (Version 2)
Quarter: 2014Q1

REPORT INFORMATION
  Report Type: Spontaneous
  Country: AT (occurrence: AT)
  Receive Date: 20140305
  Receipt Date: 20140305
  Transmission Date: 20141002
  Serious: Yes (Hospitalization)
  Sender: FDA-Public Use
  Company Number: AT-PFIZER INC-2014057150

PATIENT
  Age: 74 Year
  Sex: Female
  Weight: 74 kg

DRUGS (4)
  1. PANTOLOC [Suspect]
     Indication: GASTROOESOPHAGEAL REFLUX DISEASE
     Dosage: 40 MG, UNK
     Route: 048
     Dates: start: 20140213, end: 20140213
  2. THYREX [Concomitant]
  3. LISINOPRIL [Concomitant]
  4. SALOFALK [Concomitant]
     Dosage: 250 MG, 3X/DAY

REACTIONS (4)
  - White blood cell count increased [Recovered/Resolved]
  - C-reactive protein increased [Recovered/Resolved]
  - Pyrexia [Recovered/Resolved]
  - Chills [Recovered/Resolved]
